FAERS Safety Report 16112693 (Version 1)
Quarter: 2019Q1

REPORT INFORMATION
  Report Type: Spontaneous
  Country: FR (occurrence: FR)
  Receive Date: 20190325
  Receipt Date: 20190325
  Transmission Date: 20190418
  Serious: Yes (Hospitalization)
  Sender: FDA-Public Use
  Company Number: FR-JNJFOC-20190325538

PATIENT
  Age: 56 Year
  Sex: Female
  Weight: 48 kg

DRUGS (5)
  1. INTELENCE [Suspect]
     Active Substance: ETRAVIRINE
     Indication: HIV INFECTION
     Route: 048
     Dates: start: 201012
  2. ZELITREX [Concomitant]
     Active Substance: VALACYCLOVIR HYDROCHLORIDE
     Route: 065
  3. KIVEXA [Concomitant]
     Active Substance: ABACAVIR SULFATE\LAMIVUDINE
     Route: 065
  4. ADVAGRAF [Concomitant]
     Active Substance: TACROLIMUS
     Indication: LIVER TRANSPLANT
     Route: 048
     Dates: start: 20180827
  5. INEXIUM [Concomitant]
     Active Substance: ESOMEPRAZOLE
     Route: 065

REACTIONS (2)
  - Blindness transient [Recovered/Resolved]
  - Photopsia [Recovered/Resolved]

NARRATIVE: CASE EVENT DATE: 20190215
